FAERS Safety Report 14385707 (Version 1)
Quarter: 2018Q1

REPORT INFORMATION
  Report Type: Spontaneous
  Country: US (occurrence: US)
  Receive Date: 20180115
  Receipt Date: 20180115
  Transmission Date: 20180509
  Serious: Yes (Other)
  Sender: FDA-Public Use
  Company Number: US-SA-2017SA026390

PATIENT
  Age: 44 Year
  Sex: Female
  Weight: 85.27 kg

DRUGS (2)
  1. TAXOTERE [Suspect]
     Active Substance: DOCETAXEL
     Indication: BREAST CANCER FEMALE
     Dosage: DOSAGE: 180MG, 135 MG
     Route: 051
     Dates: start: 19991229, end: 19991229
  2. TAXOTERE [Suspect]
     Active Substance: DOCETAXEL
     Indication: BREAST CANCER FEMALE
     Dosage: DOSAGE: 180MG, 135 MG
     Route: 051
     Dates: start: 20000301, end: 20000301

REACTIONS (10)
  - Emotional distress [Unknown]
  - Impaired quality of life [Unknown]
  - Alopecia [Recovering/Resolving]
  - Anxiety [Unknown]
  - Injury [Unknown]
  - Hair texture abnormal [Unknown]
  - Pain [Unknown]
  - Psychological trauma [Unknown]
  - Hair colour changes [Unknown]
  - Impaired work ability [Unknown]

NARRATIVE: CASE EVENT DATE: 20000901
